FAERS Safety Report 6142206-X (Version None)
Quarter: 2009Q2

REPORT INFORMATION
  Report Type: 
  Country: None (occurrence: None)
  Receive Date: 20090403
  Receipt Date: 20071228
  Transmission Date: 20091009
  Serious: Yes (Death, Hospitalization, Other)
  Sender: FDA-Public Use
  Company Number: US-ASTRAZENECA-2007UW09596

PATIENT
  Age: 26224 Day
  Sex: Female
  Weight: 46.3 kg

DRUGS (12)
  1. SEROQUEL [Suspect]
     Indication: SLEEP DISORDER
     Dosage: 25 - 50 MG
     Route: 048
     Dates: start: 20040701
  2. SEROQUEL [Suspect]
     Indication: DEMENTIA ALZHEIMER'S TYPE
     Dosage: 25 - 50 MG
     Route: 048
     Dates: start: 20040701
  3. SEROQUEL [Suspect]
     Indication: AGITATION
     Dosage: 25 - 50 MG
     Route: 048
     Dates: start: 20040701
  4. FOSAMAX [Concomitant]
  5. LORAZEPAM [Concomitant]
  6. DOCUSATE [Concomitant]
  7. PIROXICAM [Concomitant]
  8. ARICEPT [Concomitant]
  9. CIPROFLOXACIN HCL [Concomitant]
  10. ACTONEL [Concomitant]
  11. PROTONIX [Concomitant]
  12. NAMENDA [Concomitant]

REACTIONS (11)
  - AGITATION [None]
  - ANAEMIA [None]
  - DEATH [None]
  - DUODENAL ULCER [None]
  - FLANK PAIN [None]
  - GASTROINTESTINAL HAEMORRHAGE [None]
  - OSTEOPENIA [None]
  - PANCREATITIS [None]
  - PANCREATITIS ACUTE [None]
  - PELVIC FRACTURE [None]
  - URINARY TRACT INFECTION [None]
